FAERS Safety Report 4386529-3 (Version None)
Quarter: 2004Q2

REPORT INFORMATION
  Report Type: 
  Country: None (occurrence: None)
  Receive Date: 20040629
  Receipt Date: 20040618
  Transmission Date: 20050107
  Serious: Yes (Death)
  Sender: FDA-Public Use
  Company Number: 200414890US

PATIENT
  Age: 30 Year
  Sex: Male

DRUGS (3)
  1. LANTUS [Suspect]
     Indication: DIABETES MELLITUS
     Dosage: DOSE: NOT PROVIDED
  2. HUMULIN R [Concomitant]
     Dosage: DOSE: NOT PROVIDED
  3. NPH INSULIN [Concomitant]
     Dosage: DOSE: NOT PROVIDED

REACTIONS (1)
  - DIABETIC COMPLICATION [None]
